FAERS Safety Report 22270708 (Version 1)
Quarter: 2023Q2

REPORT INFORMATION
  Report Type: Spontaneous
  Country: BR (occurrence: BR)
  Receive Date: 20230501
  Receipt Date: 20230501
  Transmission Date: 20230721
  Serious: Yes (Hospitalization)
  Sender: FDA-Public Use
  Company Number: BR-WOODWARD-2023-BR-000047

PATIENT
  Sex: Male

DRUGS (2)
  1. DUTASTERIDE\TAMSULOSIN HYDROCHLORIDE [Suspect]
     Active Substance: DUTASTERIDE\TAMSULOSIN HYDROCHLORIDE
     Indication: Product used for unknown indication
     Dosage: UNK, 90 CAPSULES
     Route: 065
  2. CEFUROXIME [Suspect]
     Active Substance: CEFUROXIME
     Dosage: UNK, 14 TABLETS
     Route: 065

REACTIONS (2)
  - Hospitalisation [Unknown]
  - Lung disorder [Unknown]
